FAERS Safety Report 12948116 (Version 2)
Quarter: 2016Q4

REPORT INFORMATION
  Report Type: Spontaneous
  Country: US (occurrence: US)
  Receive Date: 20161117
  Receipt Date: 20161121
  Transmission Date: 20170207
  Serious: Yes (Other)
  Sender: FDA-Public Use
  Company Number: US-HORIZON-PRE-0329-2016

PATIENT
  Age: 67 Year
  Sex: Female

DRUGS (8)
  1. SYNTHROID [Concomitant]
     Active Substance: LEVOTHYROXINE SODIUM
  2. RAYOS [Suspect]
     Active Substance: PREDNISONE
     Indication: IRRITABLE BOWEL SYNDROME
     Dosage: 5 MG DAILY
     Dates: end: 20161010
  3. RITUXAN [Concomitant]
     Active Substance: RITUXIMAB
  4. LIALDA [Concomitant]
     Active Substance: MESALAMINE
  5. TYLENOL [Concomitant]
     Active Substance: ACETAMINOPHEN
  6. FOLIC ACID. [Concomitant]
     Active Substance: FOLIC ACID
  7. METHOTREXATE. [Concomitant]
     Active Substance: METHOTREXATE
  8. LOVAZA [Concomitant]
     Active Substance: OMEGA-3-ACID ETHYL ESTERS

REACTIONS (1)
  - Steroid withdrawal syndrome [Not Recovered/Not Resolved]

NARRATIVE: CASE EVENT DATE: 20161010
